FAERS Safety Report 7425190-8 (Version None)
Quarter: 2011Q2

REPORT INFORMATION
  Report Type: 
  Country: None (occurrence: None)
  Receive Date: 20110414
  Receipt Date: 20110328
  Transmission Date: 20111010
  Serious: Yes (Hospitalization)
  Sender: FDA-Public Use
  Company Number: 11-000366

PATIENT
  Age: 75 Year
  Sex: Female

DRUGS (4)
  1. DORYX [Suspect]
     Indication: MYCOBACTERIUM FORTUITUM INFECTION
     Dosage: 200 MG, QD, ORAL
     Route: 048
     Dates: start: 20080101, end: 20080101
  2. DORYX [Suspect]
     Indication: ARTHRITIS INFECTIVE
     Dosage: 200 MG, QD, ORAL
     Route: 048
     Dates: start: 20080101, end: 20080101
  3. LEVOFLOXACIN [Suspect]
     Indication: MYCOBACTERIUM FORTUITUM INFECTION
     Dosage: 500 MG, ORAL
     Route: 048
     Dates: start: 20080101, end: 20080101
  4. LEVOFLOXACIN [Suspect]
     Indication: ARTHRITIS INFECTIVE
     Dosage: 500 MG, ORAL
     Route: 048
     Dates: start: 20080101, end: 20080101

REACTIONS (1)
  - PANCREATITIS ACUTE [None]
